FAERS Safety Report 21749683 (Version 2)
Quarter: 2023Q1

REPORT INFORMATION
  Report Type: Report from Study
  Country: US (occurrence: US)
  Receive Date: 20221219
  Receipt Date: 20230324
  Transmission Date: 20230417
  Serious: Yes (Hospitalization)
  Sender: FDA-Public Use
  Company Number: US-ALLERGAN-2241423US

PATIENT
  Sex: Female
  Weight: 61.23 kg

DRUGS (17)
  1. ATOGEPANT [Suspect]
     Active Substance: ATOGEPANT
     Indication: Migraine
     Dosage: 10 MG, QD
     Route: 048
  2. ATOGEPANT [Suspect]
     Active Substance: ATOGEPANT
     Dosage: 60 MG, QD
     Route: 048
     Dates: start: 202208, end: 20221018
  3. NORVASC [Concomitant]
     Active Substance: AMLODIPINE BESYLATE
     Indication: Hypertension
  4. ZETIA [Concomitant]
     Active Substance: EZETIMIBE
     Indication: Blood cholesterol increased
     Dosage: 10 MG
  5. OMEPRAZOLE [Concomitant]
     Active Substance: OMEPRAZOLE
     Indication: Gastrooesophageal reflux disease
  6. SPIRONOLACTONE [Concomitant]
     Active Substance: SPIRONOLACTONE
     Indication: Diuretic therapy
  7. UBRELVY [Concomitant]
     Active Substance: UBROGEPANT
     Indication: Migraine
  8. alive women^s vitamins [Concomitant]
     Indication: Vitamin supplementation
  9. COENZIMA Q10 [Concomitant]
  10. COLACE [Concomitant]
     Active Substance: DOCUSATE SODIUM
  11. GLUCOSAMINE + CHONDORITIN [Concomitant]
  12. MECLIZINE HYDROCHLORIDE [Concomitant]
     Active Substance: MECLIZINE HYDROCHLORIDE
  13. DIETARY SUPPLEMENT [Concomitant]
     Active Substance: DIETARY SUPPLEMENT
  14. renew life women^s care probiotic [Concomitant]
  15. TUMS ULTRA 1000 mg [Concomitant]
  16. VITAMIN B12 [Concomitant]
     Active Substance: CYANOCOBALAMIN
  17. VITAMIN D [Concomitant]
     Active Substance: VITAMIN D NOS

REACTIONS (6)
  - Gastritis [Not Recovered/Not Resolved]
  - Insomnia [Not Recovered/Not Resolved]
  - Illness [Not Recovered/Not Resolved]
  - Nausea [Not Recovered/Not Resolved]
  - Decreased appetite [Not Recovered/Not Resolved]
  - Weight decreased [Recovered/Resolved]

NARRATIVE: CASE EVENT DATE: 20220801
